FAERS Safety Report 5035843-7 (Version None)
Quarter: 2006Q2

REPORT INFORMATION
  Report Type: 
  Country: None (occurrence: None)
  Receive Date: 20060627
  Receipt Date: 20060620
  Transmission Date: 20061013
  Serious: Yes (Hospitalization)
  Sender: FDA-Public Use
  Company Number: US-BRISTOL-MYERS SQUIBB COMPANY-13417910

PATIENT
  Age: 60 Year
  Sex: Male
  Weight: 106 kg

DRUGS (2)
  1. CARBOPLATIN [Suspect]
     Indication: LUNG ADENOCARCINOMA
     Route: 042
     Dates: start: 20060404, end: 20060404
  2. ALIMTA [Suspect]
     Indication: LUNG ADENOCARCINOMA
     Route: 042
     Dates: start: 20060404, end: 20060404

REACTIONS (1)
  - ARRHYTHMIA SUPRAVENTRICULAR [None]
